FAERS Safety Report 6165455-3 (Version None)
Quarter: 2009Q2

REPORT INFORMATION
  Report Type: 
  Country: None (occurrence: None)
  Receive Date: 20090423
  Receipt Date: 20090421
  Transmission Date: 20091009
  Serious: Yes (Other)
  Sender: FDA-Public Use
  Company Number: US-B.I. PHARMACEUTICALS,INC./RIDGEFIELD-2009-BP-04997BP

PATIENT
  Sex: Male

DRUGS (3)
  1. SPIRIVA [Suspect]
     Indication: CHRONIC OBSTRUCTIVE PULMONARY DISEASE
     Dosage: 18MCG
     Route: 055
     Dates: start: 20060101
  2. LYRICA [Concomitant]
     Indication: NEUROPATHY PERIPHERAL
  3. VALTREX [Concomitant]
     Indication: PROPHYLAXIS

REACTIONS (3)
  - MACULAR DEGENERATION [None]
  - MYASTHENIA GRAVIS [None]
  - VISION BLURRED [None]
